FAERS Safety Report 8849320 (Version 1)
Quarter: 2012Q4

REPORT INFORMATION
  Report Type: Spontaneous
  Country: US (occurrence: None)
  Receive Date: 20121017
  Receipt Date: 20121017
  Transmission Date: 20130627
  Serious: Yes (Other)
  Sender: FDA-Public Use
  Company Number: None

PATIENT
  Age: 53 Year
  Sex: Female
  Weight: 58.06 kg

DRUGS (1)
  1. SILVER SULFADIAZINE [Suspect]
     Indication: BURN
     Dosage: to cover wound entirely, twice daily, top
     Route: 061
     Dates: start: 20120911, end: 20120913

REACTIONS (4)
  - Nausea [None]
  - Vomiting [None]
  - Dizziness [None]
  - Confusional state [None]
